FAERS Safety Report 24583029 (Version 1)
Quarter: 2024Q4

REPORT INFORMATION
  Report Type: Spontaneous
  Country: JP (occurrence: JP)
  Receive Date: 20241106
  Receipt Date: 20241106
  Transmission Date: 20250114
  Serious: Yes (Death, Hospitalization)
  Sender: RECORDATI
  Company Number: JP-RECORDATI RARE DISEASE INC.-2024002434

PATIENT

DRUGS (3)
  1. NEOPROFEN [Suspect]
     Active Substance: IBUPROFEN LYSINE
     Indication: Patent ductus arteriosus
     Dosage: 3.60 MG
     Route: 042
     Dates: start: 20210606, end: 20210606
  2. FUROSEMIDE [Concomitant]
     Active Substance: FUROSEMIDE
     Indication: Double outlet right ventricle
     Dosage: UNK
     Route: 042
     Dates: start: 20210606, end: 20210608
  3. MENATETRENONE [Concomitant]
     Active Substance: MENATETRENONE
     Indication: Prophylaxis
     Dosage: UNK
     Route: 042
     Dates: start: 20210606, end: 20210606

REACTIONS (2)
  - Circulatory failure neonatal [Fatal]
  - Platelet count decreased [Recovered/Resolved]

NARRATIVE: CASE EVENT DATE: 20210606
